FAERS Safety Report 4382577-8 (Version None)
Quarter: 2004Q2

REPORT INFORMATION
  Report Type: 
  Country: None (occurrence: None)
  Receive Date: 20040622
  Receipt Date: 20030923
  Transmission Date: 20050107
  Serious: Yes (Hospitalization)
  Sender: FDA-Public Use
  Company Number: US-ROCHE-347832

PATIENT
  Age: 48 Year
  Sex: Male

DRUGS (3)
  1. PEGASYS [Suspect]
     Indication: HEPATITIS C
     Route: 058
     Dates: start: 20030415, end: 20040423
  2. COPEGUS [Suspect]
     Indication: HEPATITIS C
     Route: 048
     Dates: start: 20030415, end: 20040423
  3. PRILOSEC [Concomitant]
     Route: 048

REACTIONS (12)
  - AMNESIA [None]
  - ASTHENIA [None]
  - DIARRHOEA [None]
  - FATIGUE [None]
  - GASTROOESOPHAGEAL REFLUX DISEASE [None]
  - HOT FLUSH [None]
  - INSOMNIA [None]
  - LETHARGY [None]
  - MEMORY IMPAIRMENT [None]
  - MUSCLE CRAMP [None]
  - MYOCARDIAL INFARCTION [None]
  - PNEUMONIA [None]
